FAERS Safety Report 8846474 (Version 1)
Quarter: 2012Q4

REPORT INFORMATION
  Report Type: 
  Country: US (occurrence: US)
  Receive Date: 20121017
  Receipt Date: 20121017
  Transmission Date: 20130627
  Serious: Yes (Death)
  Sender: FDA-Public Use
  Company Number: US-ROCHE-1128078

PATIENT
  Sex: Female

DRUGS (12)
  1. AVASTIN [Suspect]
     Indication: BREAST CANCER FEMALE
     Route: 065
     Dates: start: 20060919
  2. AVASTIN [Suspect]
     Route: 065
     Dates: start: 20061004
  3. AVASTIN [Suspect]
     Route: 065
     Dates: start: 20061018
  4. AVASTIN [Suspect]
     Route: 065
     Dates: start: 20061101
  5. AVASTIN [Suspect]
     Route: 065
     Dates: start: 20061115
  6. AVASTIN [Suspect]
     Route: 065
     Dates: start: 20061129
  7. AVASTIN [Suspect]
     Route: 065
     Dates: start: 20061213
  8. AVASTIN [Suspect]
     Route: 065
     Dates: start: 20061227
  9. AVASTIN [Suspect]
     Route: 065
     Dates: start: 20070110
  10. AVASTIN [Suspect]
     Route: 065
     Dates: start: 20070124
  11. XELODA [Concomitant]
     Route: 065
  12. ZOMETA [Concomitant]

REACTIONS (1)
  - Disease progression [Fatal]
